FAERS Safety Report 5328330-X (Version None)
Quarter: 2007Q2

REPORT INFORMATION
  Report Type: 
  Country: None (occurrence: None)
  Receive Date: 20070518
  Receipt Date: 20060424
  Transmission Date: 20071010
  Serious: Yes (Other)
  Sender: FDA-Public Use
  Company Number: CH-JNJFOC-20070503072

PATIENT
  Age: 7 Decade
  Sex: Female
  Weight: 53 kg

DRUGS (8)
  1. DOXORUBICIN HCL [Suspect]
     Route: 042
  2. DOXORUBICIN HCL [Suspect]
     Indication: BREAST CANCER METASTATIC
     Route: 042
  3. CAPECITABINE [Concomitant]
     Indication: CHEMOTHERAPY
  4. VINORELBINE [Concomitant]
     Indication: CHEMOTHERAPY
  5. DEXAMETHASONE 0.5MG TAB [Concomitant]
  6. NOVABAN [Concomitant]
  7. RADIOTHERAPY [Concomitant]
     Indication: RADIOTHERAPY
  8. TAMOXIFEN CITRATE [Concomitant]

REACTIONS (2)
  - MUCOSAL INFLAMMATION [None]
  - PALMAR-PLANTAR ERYTHRODYSAESTHESIA SYNDROME [None]
